FAERS Safety Report 9387376 (Version 2)
Quarter: 2014Q3

REPORT INFORMATION
  Report Type: Spontaneous
  Country: US (occurrence: US)
  Receive Date: 20130708
  Receipt Date: 20140708
  Transmission Date: 20150326
  Serious: No
  Sender: FDA-Public Use
  Company Number: US-GLAXOSMITHKLINE-A1020638A

PATIENT
  Age: 28 Year
  Sex: Male
  Weight: 64.5 kg

DRUGS (3)
  1. LAMICTAL [Suspect]
     Active Substance: LAMOTRIGINE
     Indication: CONVULSION
     Dosage: 100MG UNKNOWN
     Route: 048
     Dates: start: 20110921
  2. POTIGA [Suspect]
     Active Substance: EZOGABINE
     Indication: CONVULSION
     Dosage: 400MG TWICE PER DAY
     Route: 048
     Dates: start: 20120920
  3. CLONAZEPAM. [Concomitant]
     Active Substance: CLONAZEPAM

REACTIONS (2)
  - Chromaturia [Recovered/Resolved]
  - Adverse drug reaction [Recovered/Resolved]

NARRATIVE: CASE EVENT DATE: 2013
